FAERS Safety Report 20749732 (Version 3)
Quarter: 2022Q2

REPORT INFORMATION
  Report Type: Spontaneous
  Country: JP (occurrence: JP)
  Receive Date: 20220426
  Receipt Date: 20220517
  Transmission Date: 20220720
  Serious: Yes (Death, Other)
  Sender: FDA-Public Use
  Company Number: JP-BRISTOL-MYERS SQUIBB COMPANY-2022-025197

PATIENT
  Age: 9 Decade

DRUGS (3)
  1. VIDAZA [Suspect]
     Active Substance: AZACITIDINE
     Indication: Myelodysplastic syndrome
     Route: 065
  2. VIDAZA [Suspect]
     Active Substance: AZACITIDINE
     Indication: Myeloproliferative neoplasm
     Route: 065
  3. VIDAZA [Suspect]
     Active Substance: AZACITIDINE

REACTIONS (3)
  - Pneumonia [Fatal]
  - Cerebral infarction [Fatal]
  - Condition aggravated [Unknown]
